FAERS Safety Report 25432066 (Version 1)
Quarter: 2025Q2

REPORT INFORMATION
  Report Type: Spontaneous
  Country: CN (occurrence: CN)
  Receive Date: 20250613
  Receipt Date: 20250613
  Transmission Date: 20250717
  Serious: Yes (Hospitalization, Other)
  Sender: RANBAXY
  Company Number: CN-SUN PHARMACEUTICAL INDUSTRIES LTD-2025R1-511076

PATIENT
  Age: 12 Year
  Sex: Male

DRUGS (1)
  1. CARBAMAZEPINE [Suspect]
     Active Substance: CARBAMAZEPINE
     Indication: Depression
     Dosage: 800 MILLIGRAM, DAILY
     Route: 065

REACTIONS (4)
  - Drug level increased [Unknown]
  - Osteonecrosis [Unknown]
  - Peripheral nerve injury [Unknown]
  - Rhabdomyolysis [Unknown]
